FAERS Safety Report 9410286 (Version 2)
Quarter: 2013Q3

REPORT INFORMATION
  Report Type: Spontaneous
  Country: US (occurrence: US)
  Receive Date: 20130719
  Receipt Date: 20130830
  Transmission Date: 20140515
  Serious: No
  Sender: FDA-Public Use
  Company Number: US-PFIZER INC-2013212434

PATIENT
  Age: 56 Year
  Sex: Male

DRUGS (10)
  1. CHANTIX [Suspect]
     Dosage: UNK
  2. ALDACTONE [Suspect]
     Dosage: 25 MG, DAILY IN THE MORNING
     Route: 048
  3. PROVENTIL [Suspect]
     Indication: WHEEZING
     Dosage: INHALE 2 PUFFS INTO THE LUNGS EVERY 4 HOURS AS NEEDED
     Route: 055
  4. VENTOLIN [Suspect]
     Indication: WHEEZING
     Dosage: 2 PUFFS INTO THE LUNGS EVERY 4 HOURS AS NEEDED
     Route: 055
  5. ELAVIL [Suspect]
     Dosage: 50MG TO 150MG NIGHTLY
  6. LASIX [Suspect]
     Dosage: 40 MG, 1X/DAY
     Route: 048
  7. CORGARD [Concomitant]
     Dosage: 20 MG, 1X/DAY
     Route: 048
  8. ADVAIR [Concomitant]
     Dosage: 100-50 MCG/DOSE, 1 PUFF INTO THE LUNGS EVERY 12 HOURS
     Route: 055
  9. CHLORHEXIDINE [Concomitant]
     Indication: BACTERIAL DISEASE CARRIER
     Dosage: WASH SKIN DAILY X 7 DAYS
     Route: 061
  10. CHLORHEXIDINE [Concomitant]
     Dosage: ONCE WEEKLY
     Route: 061

REACTIONS (1)
  - Drug hypersensitivity [Unknown]
